FAERS Safety Report 5071535-6 (Version None)
Quarter: 2006Q3

REPORT INFORMATION
  Report Type: 
  Country: None (occurrence: None)
  Receive Date: 20060803
  Receipt Date: 20060803
  Transmission Date: 20061208
  Serious: Yes (Hospitalization)
  Sender: FDA-Public Use
  Company Number: None

PATIENT
  Age: 59 Year
  Sex: Male
  Weight: 93.7 kg

DRUGS (1)
  1. CILOSTAZOL [Suspect]
     Indication: INTERMITTENT CLAUDICATION
     Dosage: 100 MG  PO  BID
     Route: 048
     Dates: start: 20060306, end: 20060606

REACTIONS (1)
  - CARDIAC FAILURE CONGESTIVE [None]
